FAERS Safety Report 7257185-1 (Version None)
Quarter: 2011Q1

REPORT INFORMATION
  Report Type: 
  Country: None (occurrence: None)
  Receive Date: 20110129
  Receipt Date: 20100817
  Transmission Date: 20110831
  Serious: No
  Sender: FDA-Public Use
  Company Number: US-ABBOTT-10P-163-0664658-00

PATIENT
  Age: 50 Year
  Sex: Female

DRUGS (5)
  1. LIALDA [Concomitant]
     Indication: PRODUCT USED FOR UNKNOWN INDICATION
     Dosage: AM
  2. ATENOLOL [Concomitant]
     Indication: PRODUCT USED FOR UNKNOWN INDICATION
     Dosage: EACH AM
  3. HUMIRA [Suspect]
     Indication: CROHN'S DISEASE
     Dosage: 80 MG TODAY, THEN 40 MG EVERY 2 WEEKS
     Dates: start: 20100803
  4. PREDNISONE [Concomitant]
     Indication: PRODUCT USED FOR UNKNOWN INDICATION
     Dosage: AM
  5. PENTASOL [Concomitant]
     Indication: PRODUCT USED FOR UNKNOWN INDICATION

REACTIONS (2)
  - INJECTION SITE NODULE [None]
  - INJECTION SITE ERYTHEMA [None]
